FAERS Safety Report 6083289-5 (Version None)
Quarter: 2009Q1

REPORT INFORMATION
  Report Type: 
  Country: None (occurrence: None)
  Receive Date: 20090213
  Receipt Date: 20090213
  Transmission Date: 20090719
  Serious: No
  Sender: FDA-Public Use
  Company Number: None

PATIENT
  Sex: Female

DRUGS (2)
  1. FLEXERIL [Suspect]
     Dosage: 10MG TABLET 10 MG QHS ORAL
     Route: 048
     Dates: start: 20090116, end: 20090213
  2. IBUPROFEN [Concomitant]

REACTIONS (1)
  - SEDATION [None]
